FAERS Safety Report 24277448 (Version 2)
Quarter: 2024Q3

REPORT INFORMATION
  Report Type: Spontaneous
  Country: NL (occurrence: NL)
  Receive Date: 20240903
  Receipt Date: 20240916
  Transmission Date: 20241017
  Serious: Yes (Death, Hospitalization, Other)
  Sender: MYLAN
  Company Number: NL-ASTELLAS-2024EU007477

PATIENT
  Age: 24 Year
  Sex: Male

DRUGS (6)
  1. MYCOPHENOLATE MOFETIL [Suspect]
     Active Substance: MYCOPHENOLATE MOFETIL
     Indication: Liver transplant
     Dosage: UNK UNK, UNKNOWN FREQUENCY
     Route: 065
  2. PREDNISOLONE [Suspect]
     Active Substance: PREDNISOLONE
     Indication: Liver transplant
     Dosage: UNK UNK, UNKNOWN FREQUENCY (TAPERED TO 0 MG WITHIN THE FIRST 3-6 MONTHS)
     Route: 065
  3. PREDNISOLONE [Suspect]
     Active Substance: PREDNISOLONE
     Indication: Liver transplant
     Dosage: UNK, UNK, UNKNOWN FREQUENCY
     Route: 065
  4. TACROLIMUS [Suspect]
     Active Substance: TACROLIMUS
     Indication: Liver transplant
     Dosage: UNK UNK, UNKNOWN FREQUENCY (STARTED ON DAY 5)
     Route: 065
  5. METHYLPREDNISOLONE [Suspect]
     Active Substance: METHYLPREDNISOLONE
     Indication: Transplant rejection
     Dosage: 1 GRAM UNKNOWN FREQUENCY (TWO PULSED COURSES)
     Route: 042
  6. DICLOFENAC [Concomitant]
     Active Substance: DICLOFENAC
     Indication: Prophylaxis
     Dosage: 100 MILLIGRAM UNKNOWN FREQUENCY (ONE DOSE)
     Route: 054

REACTIONS (2)
  - Pancreatitis necrotising [Fatal]
  - Renal failure [Fatal]
